FAERS Safety Report 10012063 (Version 1)
Quarter: 2014Q1

REPORT INFORMATION
  Report Type: Spontaneous
  Country: US (occurrence: None)
  Receive Date: 20140313
  Receipt Date: 20140313
  Transmission Date: 20141002
  Serious: Yes (Other)
  Sender: FDA-Public Use
  Company Number: None

PATIENT
  Age: 59 Year
  Sex: Female
  Weight: 81.65 kg

DRUGS (3)
  1. OPTICLEANSE GHI CHAHI [Suspect]
     Indication: NUTRITIONAL SUPPLEMENTATION
     Dosage: 2 SCOOPS
  2. SIMVASTATIN [Concomitant]
  3. VITAMIN D32 [Concomitant]

REACTIONS (3)
  - Palpitations [None]
  - Heart rate irregular [None]
  - Cardiac flutter [None]
